FAERS Safety Report 5192097-9 (Version None)
Quarter: 2006Q4

REPORT INFORMATION
  Report Type: 
  Country: None (occurrence: None)
  Receive Date: 20061220
  Receipt Date: 20061205
  Transmission Date: 20070319
  Serious: Yes (Hospitalization)
  Sender: FDA-Public Use
  Company Number: US-2006-028818

PATIENT
  Age: 50 Year
  Sex: Female
  Weight: 77.1 kg

DRUGS (11)
  1. BETASERON [Suspect]
     Indication: RELAPSING-REMITTING MULTIPLE SCLEROSIS
     Dosage: 8 MIU, EVERY 2D, SUBCUTANEOUS
     Route: 058
     Dates: start: 20060619, end: 20060825
  2. BETASERON [Suspect]
     Dosage: EVERY 2D, SUBCUTANEOUS
     Route: 058
     Dates: start: 20060801, end: 20060801
  3. BETASERON [Suspect]
     Dosage: 8 MIU, EVERY 2D, SUBCUTANEOUS
     Route: 058
     Dates: start: 20060909
  4. DETROL LA [Concomitant]
  5. ZOLOFT [Concomitant]
  6. BACLOFEN [Concomitant]
  7. SINGULAIR [Concomitant]
  8. ZYRTEC [Concomitant]
  9. PROTONIX [Concomitant]
  10. ADVAIR 250/500 (SALMETEROL XINAFOATE, FLUTICASONE PROPIONATE) [Concomitant]
  11. ALEVE COLD + SINUS (NAPROXEN SODIUM) [Concomitant]

REACTIONS (4)
  - ANAPHYLACTIC SHOCK [None]
  - COLITIS [None]
  - LOSS OF CONSCIOUSNESS [None]
  - OEDEMA PERIPHERAL [None]
